FAERS Safety Report 10333364 (Version 1)
Quarter: 2014Q3

REPORT INFORMATION
  Report Type: Spontaneous
  Country: US (occurrence: US)
  Receive Date: 20140722
  Receipt Date: 20140722
  Transmission Date: 20150326
  Serious: Yes (Other)
  Sender: FDA-Public Use
  Company Number: US-SA-2014SA072905

PATIENT
  Age: 48 Year
  Sex: Male

DRUGS (1)
  1. AMBIEN [Suspect]
     Active Substance: ZOLPIDEM TARTRATE
     Indication: SLEEP DISORDER
     Dosage: TOOK AT NIGHT, ?STOPPED ABOUT 5-6 DAYS AGO
     Route: 065
     Dates: start: 201405, end: 201405

REACTIONS (4)
  - Drug dose omission [Unknown]
  - Urinary retention [Not Recovered/Not Resolved]
  - Incorrect dose administered [Unknown]
  - Micturition urgency [Not Recovered/Not Resolved]

NARRATIVE: CASE EVENT DATE: 201405
